FAERS Safety Report 15757637 (Version 3)
Quarter: 2021Q1

REPORT INFORMATION
  Report Type: Spontaneous
  Country: US (occurrence: US)
  Receive Date: 20181225
  Receipt Date: 20210112
  Transmission Date: 20210419
  Serious: Yes (Other)
  Sender: FDA-Public Use
  Company Number: US-ACCORD-072775

PATIENT
  Age: 81 Year
  Sex: Female

DRUGS (6)
  1. ENALAPRIL [Concomitant]
     Active Substance: ENALAPRIL
     Dosage: STRENGTH: 5 MG AND 2 MG
  2. RESTORIL [Concomitant]
     Active Substance: TEMAZEPAM
     Dosage: STRENGTH: 15 MG
  3. TEMAZEPAM. [Concomitant]
     Active Substance: TEMAZEPAM
     Dosage: STRENGTH: 15 MG?DIDN^T WORK FOR HER
  4. ZOLOFT [Concomitant]
     Active Substance: SERTRALINE HYDROCHLORIDE
     Dosage: 25MG
  5. METHYLDOPA ACCORD [Suspect]
     Active Substance: METHYLDOPA
     Indication: HYPERTENSION
     Dosage: STRENGTH:250MG, DISPENSED IN A PHARMACY BOTTLE
     Route: 048
     Dates: start: 20180816
  6. NEXIUM [Concomitant]
     Active Substance: ESOMEPRAZOLE MAGNESIUM

REACTIONS (15)
  - Insomnia [Not Recovered/Not Resolved]
  - Social problem [Not Recovered/Not Resolved]
  - Reaction to excipient [Not Recovered/Not Resolved]
  - Cardiac flutter [Not Recovered/Not Resolved]
  - Fatigue [Not Recovered/Not Resolved]
  - Product colour issue [Unknown]
  - Burning sensation [Not Recovered/Not Resolved]
  - Nervousness [Not Recovered/Not Resolved]
  - Hypersensitivity [Not Recovered/Not Resolved]
  - Nausea [Not Recovered/Not Resolved]
  - Photosensitivity reaction [Not Recovered/Not Resolved]
  - Product substitution issue [Unknown]
  - Rash [Not Recovered/Not Resolved]
  - Illness [Not Recovered/Not Resolved]
  - Erythema [Not Recovered/Not Resolved]
